FAERS Safety Report 10674487 (Version 3)
Quarter: 2017Q2

REPORT INFORMATION
  Report Type: Spontaneous
  Country: US (occurrence: US)
  Receive Date: 20141224
  Receipt Date: 20170620
  Transmission Date: 20170829
  Serious: No
  Sender: FDA-Public Use
  Company Number: US-PFIZER INC-2014354245

PATIENT
  Age: 62 Year
  Sex: Female
  Weight: 54 kg

DRUGS (5)
  1. PREMARIN [Suspect]
     Active Substance: ESTROGENS, CONJUGATED
     Dosage: 1.25 MG, DAILY
  2. SYNTHROID [Concomitant]
     Active Substance: LEVOTHYROXINE SODIUM
     Indication: HYPOTHYROIDISM
     Dosage: 100 UG, DAILY
  3. PREMARIN [Suspect]
     Active Substance: ESTROGENS, CONJUGATED
     Dosage: 0.625 MG, 1X/DAY
     Route: 048
     Dates: start: 20141219
  4. SYNTHROID [Concomitant]
     Active Substance: LEVOTHYROXINE SODIUM
     Dosage: 88 UG, 1X/DAY
  5. PREMARIN [Suspect]
     Active Substance: ESTROGENS, CONJUGATED
     Indication: ARTIFICIAL MENOPAUSE
     Dosage: 1.25 MG, DAILY
     Route: 048
     Dates: start: 1996

REACTIONS (3)
  - Intentional product misuse [Not Recovered/Not Resolved]
  - Visual impairment [Not Recovered/Not Resolved]
  - Genito-pelvic pain/penetration disorder [Not Recovered/Not Resolved]

NARRATIVE: CASE EVENT DATE: 20141218
